FAERS Safety Report 23686864 (Version 2)
Quarter: 2024Q2

REPORT INFORMATION
  Report Type: Spontaneous
  Country: US (occurrence: US)
  Receive Date: 20240329
  Receipt Date: 20240408
  Transmission Date: 20240717
  Serious: Yes (Death, Hospitalization, Other)
  Sender: FDA-Public Use
  Company Number: US-STERISCIENCE B.V.-2024-ST-000351

PATIENT
  Age: 65 Year
  Sex: Male

DRUGS (11)
  1. PIPERACILLIN SODIUM\TAZOBACTAM SODIUM [Suspect]
     Active Substance: PIPERACILLIN SODIUM\TAZOBACTAM SODIUM
     Indication: Bacterial pericarditis
     Dosage: UNK
     Route: 042
     Dates: start: 20220701
  2. VANCOMYCIN [Concomitant]
     Active Substance: VANCOMYCIN
     Indication: Evidence based treatment
     Dosage: UNK
     Route: 065
     Dates: start: 20220630, end: 20220701
  3. DOXORUBICIN [Concomitant]
     Active Substance: DOXORUBICIN
     Indication: Malignant mediastinal neoplasm
     Dosage: 150 MILLIGRAM/SQ. METER
     Route: 065
  4. IFOSFAMIDE [Concomitant]
     Active Substance: IFOSFAMIDE
     Indication: Malignant mediastinal neoplasm
     Dosage: UNK
     Route: 065
  5. COLCHICINE [Concomitant]
     Active Substance: COLCHICINE
     Indication: Radiation pericarditis
     Dosage: UNK
     Route: 065
     Dates: start: 20220626
  6. IBUPROFEN [Concomitant]
     Active Substance: IBUPROFEN
     Indication: Radiation pericarditis
     Dosage: UNK
     Route: 065
     Dates: start: 20220626, end: 20220627
  7. PREDNISONE [Concomitant]
     Active Substance: PREDNISONE
     Indication: Radiation pericarditis
     Dosage: UNK
     Route: 048
     Dates: start: 20220627, end: 20220630
  8. CEFTRIAXONE [Concomitant]
     Active Substance: CEFTRIAXONE\CEFTRIAXONE SODIUM
     Indication: Evidence based treatment
     Dosage: UNK
     Route: 065
     Dates: start: 20220630, end: 20220701
  9. AMIODARONE [Concomitant]
     Active Substance: AMIODARONE
     Indication: Atrial fibrillation
     Dosage: UNK
     Route: 065
     Dates: start: 20220627
  10. FLUCONAZOLE [Concomitant]
     Active Substance: FLUCONAZOLE
     Indication: Candida infection
     Dosage: UNK
     Route: 065
  11. MICAFUNGIN [Concomitant]
     Active Substance: MICAFUNGIN SODIUM
     Indication: Candida infection
     Dosage: UNK
     Route: 065
     Dates: start: 20220704

REACTIONS (2)
  - Drug ineffective for unapproved indication [Fatal]
  - Condition aggravated [Fatal]
